FAERS Safety Report 10373171 (Version 2)
Quarter: 2014Q3

REPORT INFORMATION
  Report Type: Spontaneous
  Country: US (occurrence: US)
  Receive Date: 20140808
  Receipt Date: 20140808
  Transmission Date: 20150326
  Serious: Yes (Other)
  Sender: FDA-Public Use
  Company Number: US-BRISTOL-MYERS SQUIBB COMPANY-20125977

PATIENT
  Age: 85 Year
  Sex: Female

DRUGS (13)
  1. SPRYCEL [Suspect]
     Active Substance: DASATINIB
     Indication: CHRONIC MYELOID LEUKAEMIA
     Route: 048
     Dates: start: 20140107, end: 2014
  2. ASPIRIN. [Concomitant]
     Active Substance: ASPIRIN
  3. CARVEDILOL. [Concomitant]
     Active Substance: CARVEDILOL
  4. COENZYME Q10 [Concomitant]
     Active Substance: UBIDECARENONE
  5. ATORVASTATIN [Concomitant]
     Active Substance: ATORVASTATIN
  6. CALCIUM [Concomitant]
     Active Substance: CALCIUM
  7. BENEFIBER [Concomitant]
     Active Substance: STARCH, WHEAT
  8. MULTIVITAMIN [Concomitant]
     Active Substance: VITAMINS
  9. OMEPRAZOLE. [Concomitant]
     Active Substance: OMEPRAZOLE
  10. DIGOXIN. [Concomitant]
     Active Substance: DIGOXIN
  11. VITAMIN D3 [Concomitant]
     Active Substance: CHOLECALCIFEROL
  12. DETROL [Concomitant]
     Active Substance: TOLTERODINE TARTRATE
  13. SPIRONOLACTONE. [Concomitant]
     Active Substance: SPIRONOLACTONE

REACTIONS (7)
  - Heart rate irregular [Unknown]
  - Cardiac failure congestive [Unknown]
  - Fluid retention [Unknown]
  - Rash [Unknown]
  - Pain [Unknown]
  - Dyspnoea [Unknown]
  - Palpitations [Unknown]
